FAERS Safety Report 15829469 (Version 1)
Quarter: 2019Q1

REPORT INFORMATION
  Report Type: Spontaneous
  Country: US (occurrence: US)
  Receive Date: 20190115
  Receipt Date: 20190115
  Transmission Date: 20190417
  Serious: No
  Sender: FDA-Public Use
  Company Number: US-ALLERGAN-1843443US

PATIENT
  Sex: Female
  Weight: 62.59 kg

DRUGS (2)
  1. SYSTANE (HYPROMELLOSE 2910 (4000 MPA.S)) [Concomitant]
     Active Substance: HYPROMELLOSE 2910 (4000 MPA.S)
     Indication: VITREOUS FLOATERS
     Dosage: UNK
     Route: 047
  2. RESTASIS [Suspect]
     Active Substance: CYCLOSPORINE
     Indication: VITREOUS FLOATERS
     Dosage: 2 GTT, BID
     Route: 047
     Dates: start: 201808, end: 20180905

REACTIONS (2)
  - Off label use [Unknown]
  - Vision blurred [Recovering/Resolving]

NARRATIVE: CASE EVENT DATE: 201808
